FAERS Safety Report 7314065-0 (Version None)
Quarter: 2011Q1

REPORT INFORMATION
  Report Type: 
  Country: None (occurrence: None)
  Receive Date: 20110225
  Receipt Date: 20100422
  Transmission Date: 20110831
  Serious: No
  Sender: FDA-Public Use
  Company Number: US-MYLANLABS-2010S1007060

PATIENT
  Age: 17 Year
  Sex: Male

DRUGS (3)
  1. AMNESTEEM [Suspect]
     Indication: ACNE CYSTIC
     Route: 048
     Dates: start: 20090101, end: 20091201
  2. CLARAVIS [Suspect]
     Route: 048
     Dates: start: 20090101, end: 20090101
  3. CLARAVIS [Suspect]
     Indication: ACNE CYSTIC
     Route: 048
     Dates: start: 20090901, end: 20090101

REACTIONS (3)
  - ACNE CYSTIC [None]
  - DRUG INEFFECTIVE [None]
  - CONDITION AGGRAVATED [None]
